FAERS Safety Report 12466185 (Version 1)
Quarter: 2016Q2

REPORT INFORMATION
  Report Type: Spontaneous
  Country: NL (occurrence: NL)
  Receive Date: 20160602
  Receipt Date: 20160602
  Transmission Date: 20160815
  Serious: Yes (Hospitalization, Other)
  Sender: FDA-Public Use
  Company Number: NL-TEVA-662910ISR

PATIENT
  Age: 18 Year
  Sex: Female

DRUGS (1)
  1. ETHINYLESTRADIOL/ DROSPIRENON TEVA FILM-COATED TABLETS 0,03/3 MG [Suspect]
     Active Substance: DROSPIRENONE\ETHINYL ESTRADIOL
     Indication: OFF LABEL USE
     Route: 048
     Dates: start: 2016

REACTIONS (7)
  - Dizziness [Not Recovered/Not Resolved]
  - Off label use [Unknown]
  - Dysstasia [None]
  - Chest pain [Not Recovered/Not Resolved]
  - Dyspnoea [Not Recovered/Not Resolved]
  - Fatigue [Not Recovered/Not Resolved]
  - Nausea [Not Recovered/Not Resolved]

NARRATIVE: CASE EVENT DATE: 201605
